FAERS Safety Report 23465930 (Version 1)
Quarter: 2024Q1

REPORT INFORMATION
  Report Type: Spontaneous
  Country: US (occurrence: US)
  Receive Date: 20240201
  Receipt Date: 20240201
  Transmission Date: 20240410
  Serious: Yes (Other)
  Sender: FDA-Public Use
  Company Number: US-002147023-NVSC2024US022383

PATIENT

DRUGS (4)
  1. CLOFAZIMINE [Suspect]
     Active Substance: CLOFAZIMINE
     Indication: Infection
     Dosage: UNK
     Route: 065
     Dates: start: 2021, end: 2022
  2. TIGECYCLINE [Suspect]
     Active Substance: TIGECYCLINE
     Indication: Infection
     Dosage: UNK
     Route: 065
     Dates: start: 2021, end: 2022
  3. CEFIXIME [Suspect]
     Active Substance: CEFIXIME
     Indication: Infection
     Dosage: UNK
     Route: 065
     Dates: start: 2021, end: 2022
  4. AMIKACIN [Suspect]
     Active Substance: AMIKACIN
     Indication: Infection
     Dosage: UNK
     Route: 065
     Dates: start: 2021, end: 2022

REACTIONS (1)
  - Disease progression [Unknown]
